FAERS Safety Report 21339827 (Version 2)
Quarter: 2022Q4

REPORT INFORMATION
  Report Type: Report from Study
  Country: US (occurrence: US)
  Receive Date: 20220915
  Receipt Date: 20221003
  Transmission Date: 20230112
  Serious: No
  Sender: FDA-Public Use
  Company Number: US-SA-SAC20220913001333

PATIENT
  Age: 63 Year

DRUGS (12)
  1. TERIFLUNOMIDE [Suspect]
     Active Substance: TERIFLUNOMIDE
     Indication: Multiple sclerosis
     Dosage: 7 MG, QD
     Route: 048
     Dates: start: 20210621
  2. OXYBUTYNIN [Concomitant]
     Active Substance: OXYBUTYNIN
  3. TRIAMTERENE [Concomitant]
     Active Substance: TRIAMTERENE
  4. SIMVASTATIN [Concomitant]
     Active Substance: SIMVASTATIN
  5. AMLODIPINE [Concomitant]
     Active Substance: AMLODIPINE BESYLATE
  6. BENAZEPRIL [Concomitant]
     Active Substance: BENAZEPRIL HYDROCHLORIDE
  7. MONTELUKAST [Concomitant]
     Active Substance: MONTELUKAST SODIUM
  8. FUROSEMIDE [Concomitant]
     Active Substance: FUROSEMIDE
  9. METFORMIN [Concomitant]
     Active Substance: METFORMIN HYDROCHLORIDE
  10. TAMSULOSIN [Concomitant]
     Active Substance: TAMSULOSIN
  11. ASPIRIN BP [Concomitant]
  12. IBUPROFEN [Concomitant]
     Active Substance: IBUPROFEN

REACTIONS (3)
  - Rash [Recovered/Resolved]
  - Nervous system disorder [Not Recovered/Not Resolved]
  - Cheilitis [Not Recovered/Not Resolved]

NARRATIVE: CASE EVENT DATE: 20210101
